FAERS Safety Report 6956937-2 (Version None)
Quarter: 2010Q3

REPORT INFORMATION
  Report Type: 
  Country: None (occurrence: None)
  Receive Date: 20100826
  Receipt Date: 20100820
  Transmission Date: 20110219
  Serious: Yes (Death)
  Sender: FDA-Public Use
  Company Number: UTC-001357

PATIENT
  Age: 36 Year
  Sex: Female
  Weight: 68.5 kg

DRUGS (9)
  1. REMODULIN [Suspect]
     Indication: PULMONARY ARTERIAL HYPERTENSION
     Dosage: 158.4 UG/KG (0.11 UG/KG, 1 IN 1 MIN), INTRAVENOUS
     Route: 042
     Dates: start: 20061206
  2. REVATIO [Concomitant]
  3. TRACLEER [Concomitant]
  4. NASONEX [Concomitant]
  5. BUMEX [Concomitant]
  6. POTASSIUM CHLORIDE [Concomitant]
  7. IMODIUM A-D [Concomitant]
  8. EXTRA STRENGTH TYLENOL [Concomitant]
  9. COUMADIN [Concomitant]

REACTIONS (1)
  - DYSPNOEA [None]
